FAERS Safety Report 9276685 (Version 2)
Quarter: 2013Q3

REPORT INFORMATION
  Report Type: Spontaneous
  Country: PA (occurrence: PA)
  Receive Date: 20130507
  Receipt Date: 20130801
  Transmission Date: 20140515
  Serious: Yes (Life-Threatening, Hospitalization, Other)
  Sender: FDA-Public Use
  Company Number: PHHY2013PA044317

PATIENT
  Age: 3 Year
  Sex: Male

DRUGS (1)
  1. CATAFLAM [Suspect]
     Indication: PYREXIA
     Dosage: UNK UKN, UNK
     Dates: start: 201306, end: 201306

REACTIONS (4)
  - Stevens-Johnson syndrome [Recovered/Resolved with Sequelae]
  - Rash pustular [Recovered/Resolved with Sequelae]
  - Visual impairment [Unknown]
  - Eyelid ptosis [Unknown]
